FAERS Safety Report 6685170-7 (Version None)
Quarter: 2010Q2

REPORT INFORMATION
  Report Type: 
  Country: None (occurrence: None)
  Receive Date: 20100416
  Receipt Date: 20100407
  Transmission Date: 20101027
  Serious: Yes (Hospitalization)
  Sender: FDA-Public Use
  Company Number: US-AMGEN-QUU404340

PATIENT
  Sex: Female

DRUGS (1)
  1. ENBREL [Suspect]
     Indication: RHEUMATOID ARTHRITIS
     Route: 058
     Dates: start: 20100317

REACTIONS (5)
  - HYPERTENSION [None]
  - MENTAL DISORDER [None]
  - METABOLIC ENCEPHALOPATHY [None]
  - RENAL FAILURE CHRONIC [None]
  - RHEUMATOID ARTHRITIS [None]
